FAERS Safety Report 14165072 (Version 2)
Quarter: 2018Q1

REPORT INFORMATION
  Report Type: Spontaneous
  Country: US (occurrence: US)
  Receive Date: 20171107
  Receipt Date: 20180330
  Transmission Date: 20180508
  Serious: No
  Sender: FDA-Public Use
  Company Number: US-ASTRAZENECA-2017SF09854

PATIENT
  Sex: Female
  Weight: 70.3 kg

DRUGS (9)
  1. SYMBICORT [Suspect]
     Active Substance: BUDESONIDE\FORMOTEROL FUMARATE DIHYDRATE
     Indication: ASTHMA EXERCISE INDUCED
     Dosage: 160/4.5 MCG, TWO PUFFS, TWO TIMES A DAY
     Route: 055
  2. ALAVERT OTC [Concomitant]
     Indication: SEASONAL ALLERGY
     Dosage: 10 MG, TAKES ONCE IN THE MORNING AND TWICE IF NEEDED LATER
     Route: 048
     Dates: start: 2007
  3. FLONASE OTC [Concomitant]
     Indication: NASAL CONGESTION
     Dosage: DURING HAY FEVER SEASON, 50 UG, TAKES IT 1 SPRAY IN EACH NOSTRIL, DOESN^T USE IT EVERY DAY
     Route: 045
     Dates: start: 2012
  4. AZMACORT [Concomitant]
     Active Substance: TRIAMCINOLONE ACETONIDE
     Dates: start: 2012
  5. SYMBICORT [Suspect]
     Active Substance: BUDESONIDE\FORMOTEROL FUMARATE DIHYDRATE
     Indication: ASTHMA
     Dosage: TWO PUFFS IN THE MORNING
     Route: 055
  6. SYMBICORT [Suspect]
     Active Substance: BUDESONIDE\FORMOTEROL FUMARATE DIHYDRATE
     Indication: ASTHMA
     Dosage: 160/4.5 MCG, TWO PUFFS, TWO TIMES A DAY
     Route: 055
  7. SYMBICORT [Suspect]
     Active Substance: BUDESONIDE\FORMOTEROL FUMARATE DIHYDRATE
     Indication: ASTHMA EXERCISE INDUCED
     Dosage: TWO PUFFS IN THE MORNING
     Route: 055
  8. ALAVERT OTC [Concomitant]
     Indication: HYPERSENSITIVITY
     Dosage: 10 MG, TAKES ONCE IN THE MORNING AND TWICE IF NEEDED LATER
     Route: 048
     Dates: start: 2007
  9. FLONASE OTC [Concomitant]
     Indication: EYE PRURITUS
     Dosage: DURING HAY FEVER SEASON, 50 UG, TAKES IT 1 SPRAY IN EACH NOSTRIL, DOESN^T USE IT EVERY DAY
     Route: 045
     Dates: start: 2012

REACTIONS (10)
  - Loss of personal independence in daily activities [Unknown]
  - Dyspnoea [Unknown]
  - Drug ineffective [Unknown]
  - Circumstance or information capable of leading to medication error [Unknown]
  - Product use issue [Unknown]
  - Drug dispensing error [Unknown]
  - Off label use [Unknown]
  - Lung disorder [Unknown]
  - Chest discomfort [Unknown]
  - Intentional device misuse [Unknown]
